FAERS Safety Report 7010180-X (Version None)
Quarter: 2010Q3

REPORT INFORMATION
  Report Type: 
  Country: None (occurrence: None)
  Receive Date: 20100923
  Receipt Date: 20100913
  Transmission Date: 20110219
  Serious: Yes (Other)
  Sender: FDA-Public Use
  Company Number: GR-BAXTER-2010BH023567

PATIENT
  Age: 46 Year
  Sex: Female
  Weight: 46 kg

DRUGS (6)
  1. CYCLOPHOSPHAMIDE [Suspect]
     Indication: BREAST CANCER
     Route: 042
     Dates: start: 20061114, end: 20061114
  2. METHOTREXATE SODIUM [Suspect]
     Indication: BREAST CANCER
     Route: 042
     Dates: start: 20061114, end: 20061114
  3. FLUOROURACIL [Suspect]
     Indication: BREAST CANCER
     Route: 042
     Dates: start: 20061114, end: 20061114
  4. GRANISETRON HCL [Concomitant]
     Indication: PROPHYLAXIS OF NAUSEA AND VOMITING
     Route: 042
     Dates: start: 20061114, end: 20061114
  5. RANITIDINE [Concomitant]
     Indication: PROPHYLAXIS AGAINST GASTROINTESTINAL ULCER
     Route: 042
     Dates: start: 20061114, end: 20061114
  6. DEXAMETHASONE [Concomitant]
     Indication: ANTIALLERGIC THERAPY
     Route: 042
     Dates: start: 20061114, end: 20061114

REACTIONS (1)
  - HEPATIC ENZYME INCREASED [None]
